FAERS Safety Report 11105434 (Version 2)
Quarter: 2015Q2

REPORT INFORMATION
  Report Type: Spontaneous
  Country: DE (occurrence: DE)
  Receive Date: 20150512
  Receipt Date: 20150629
  Transmission Date: 20150821
  Serious: Yes (Other)
  Sender: FDA-Public Use
  Company Number: GXKR2015DE002363

PATIENT
  Age: 69 Year
  Sex: Female

DRUGS (2)
  1. BROMPERIDOL [Concomitant]
     Active Substance: BROMPERIDOL
     Indication: PRODUCT USED FOR UNKNOWN INDICATION
     Dosage: 0.6 MG, UNK
  2. AMINEURIN [Suspect]
     Active Substance: AMITRIPTYLINE HYDROCHLORIDE
     Indication: MENTAL DISORDER
     Dosage: 12.5 MG, BID
     Route: 048
     Dates: start: 2004

REACTIONS (1)
  - Renal failure [Not Recovered/Not Resolved]
